FAERS Safety Report 17840652 (Version 1)
Quarter: 2020Q2

REPORT INFORMATION
  Report Type: Spontaneous
  Country: US (occurrence: US)
  Receive Date: 20200529
  Receipt Date: 20200529
  Transmission Date: 20200714
  Serious: Yes (Death)
  Sender: FDA-Public Use
  Company Number: None

PATIENT
  Age: 62 Year
  Sex: Male

DRUGS (11)
  1. ASPIRIN. [Concomitant]
     Active Substance: ASPIRIN
  2. CLOPIDOGREL [Concomitant]
     Active Substance: CLOPIDOGREL BISULFATE
  3. NITROSTAT [Concomitant]
     Active Substance: NITROGLYCERIN
  4. AURYXIA [Suspect]
     Active Substance: TETRAFERRIC TRICITRATE DECAHYDRATE
     Indication: ANAEMIA
     Route: 048
     Dates: start: 20200302, end: 20200525
  5. MULTI-VITAMIN [Concomitant]
     Active Substance: .ALPHA.-TOCOPHEROL ACETATE, DL-\ASCORBIC ACID\CYANOCOBALAMIN\FLUORIDE ION\FOLIC ACID\NIACIN\PYRIDOXINE\RIBOFLAVIN\THIAMINE\VITAMIN A\VITAMIN D
  6. DILTIAZEM. [Concomitant]
     Active Substance: DILTIAZEM
  7. EZETIMBE [Concomitant]
     Active Substance: EZETIMIBE
  8. LIDOCAINE. [Concomitant]
     Active Substance: LIDOCAINE
  9. BETAMETH DIP OIN [Concomitant]
     Active Substance: BETAMETHASONE DIPROPIONATE
  10. LANTUS [Concomitant]
     Active Substance: INSULIN GLARGINE
  11. ROSUVASTATIN. [Concomitant]
     Active Substance: ROSUVASTATIN

REACTIONS (1)
  - Death [None]

NARRATIVE: CASE EVENT DATE: 20200525
